FAERS Safety Report 11064133 (Version 2)
Quarter: 2016Q4

REPORT INFORMATION
  Report Type: Spontaneous
  Country: US (occurrence: US)
  Receive Date: 20150424
  Receipt Date: 20161011
  Transmission Date: 20170206
  Serious: Yes (Other)
  Sender: FDA-Public Use
  Company Number: US-ARIAD PHARMACEUTICALS, INC-2015US004822

PATIENT

DRUGS (2)
  1. ICLUSIG [Suspect]
     Active Substance: PONATINIB
     Dosage: 45 MG, QD
     Route: 048
     Dates: end: 2013
  2. ICLUSIG [Suspect]
     Active Substance: PONATINIB
     Indication: ACUTE LYMPHOCYTIC LEUKAEMIA
     Dosage: 30 MG, QD
     Route: 048
     Dates: start: 201302

REACTIONS (6)
  - Acute myocardial infarction [Unknown]
  - Arteriosclerosis coronary artery [Unknown]
  - Aortic wall hypertrophy [Unknown]
  - Mesenteric arterial occlusion [Unknown]
  - Peripheral artery stenosis [Unknown]
  - Peripheral artery occlusion [Unknown]
